FAERS Safety Report 15050483 (Version 1)
Quarter: 2018Q2

REPORT INFORMATION
  Report Type: Spontaneous
  Country: US (occurrence: US)
  Receive Date: 20180622
  Receipt Date: 20180622
  Transmission Date: 20180711
  Serious: No
  Sender: FDA-Public Use
  Company Number: US-ASTELLAS-2017US035830

PATIENT
  Sex: Female
  Weight: 63 kg

DRUGS (4)
  1. MYRBETRIQ [Suspect]
     Active Substance: MIRABEGRON
     Route: 048
  2. VESICARE [Suspect]
     Active Substance: SOLIFENACIN SUCCINATE
     Indication: PRODUCT USED FOR UNKNOWN INDICATION
     Route: 048
     Dates: end: 20170903
  3. MYRBETRIQ [Suspect]
     Active Substance: MIRABEGRON
     Indication: PRODUCT USED FOR UNKNOWN INDICATION
     Dosage: UNK, ONCE DAILY
     Route: 065
  4. MYRBETRIQ [Suspect]
     Active Substance: MIRABEGRON
     Indication: PRODUCT USED FOR UNKNOWN INDICATION
     Route: 065
     Dates: end: 20170903

REACTIONS (8)
  - Drug effect incomplete [Unknown]
  - Weight increased [Recovering/Resolving]
  - Abdominal distension [Recovered/Resolved]
  - Breast enlargement [Recovering/Resolving]
  - Inappropriate schedule of drug administration [Unknown]
  - Drug ineffective [Unknown]
  - Nocturia [Unknown]
  - Alopecia [Unknown]
